FAERS Safety Report 8857395 (Version 2)
Quarter: 2013Q1

REPORT INFORMATION
  Report Type: Spontaneous
  Country: US (occurrence: US)
  Receive Date: 20121024
  Receipt Date: 20130114
  Transmission Date: 20140127
  Serious: Yes (Other)
  Sender: FDA-Public Use
  Company Number: US-009507513-1210USA007534

PATIENT
  Age: 33 Year
  Sex: Female
  Weight: 65.31 kg

DRUGS (1)
  1. ASMANEX TWISTHALER [Suspect]
     Indication: ASTHMA
     Dosage: 220 SAMPLE 2 PUFFS
     Route: 055
     Dates: start: 20121011, end: 20121011

REACTIONS (4)
  - Dyspnoea [Recovered/Resolved]
  - Cough [Recovered/Resolved]
  - Erythema [Recovered/Resolved]
  - Choking [Unknown]
